FAERS Safety Report 8227312-8 (Version None)
Quarter: 2012Q1

REPORT INFORMATION
  Report Type: 
  Country: None (occurrence: None)
  Receive Date: 20120322
  Receipt Date: 20120320
  Transmission Date: 20120608
  Serious: Yes (Death, Hospitalization, Other)
  Sender: FDA-Public Use
  Company Number: PHEH2006US02051

PATIENT
  Sex: Female
  Weight: 76.19 kg

DRUGS (18)
  1. PROTONIX [Concomitant]
     Dosage: 40 MG, QD
  2. PREMPRO [Concomitant]
  3. ROBAXIN [Concomitant]
     Dosage: 750 MG,
  4. AMBIEN [Concomitant]
  5. GEMZAR [Concomitant]
  6. ZOLOFT [Concomitant]
     Indication: DEPRESSION
  7. FIORICET [Concomitant]
  8. FEMARA [Concomitant]
     Indication: BREAST CANCER
  9. ZOMETA [Suspect]
     Indication: METASTASES TO BONE
     Dosage: 4 MG, QMO
     Dates: start: 20031229, end: 20051022
  10. CODEINE [Concomitant]
  11. ZANTAC [Concomitant]
  12. XANAX [Concomitant]
  13. RADIATION THERAPY [Concomitant]
     Indication: METASTASES TO SPINE
  14. CHEMOTHERAPEUTICS NOS [Concomitant]
  15. TAXOL [Concomitant]
  16. AROMASIN [Concomitant]
  17. ZOLOFT [Concomitant]
     Indication: ANXIETY
     Dosage: 50 MG, BID
  18. CLARITIN-D [Concomitant]

REACTIONS (56)
  - TOOTH LOSS [None]
  - MASTICATION DISORDER [None]
  - ENTEROCELE [None]
  - HEAD INJURY [None]
  - METASTASES TO LIVER [None]
  - COMPRESSION FRACTURE [None]
  - BLOOD CHOLESTEROL INCREASED [None]
  - ORAL INFECTION [None]
  - LOOSE TOOTH [None]
  - GASTROENTERITIS CLOSTRIDIAL [None]
  - UTERINE PROLAPSE [None]
  - ABDOMINAL DISCOMFORT [None]
  - DYSPNOEA [None]
  - NEOPLASM MALIGNANT [None]
  - OSTEOSCLEROSIS [None]
  - ABDOMINAL PAIN UPPER [None]
  - RECTOCELE [None]
  - CYSTOCELE [None]
  - FEBRILE NEUTROPENIA [None]
  - METASTASES TO BONE [None]
  - NEOPLASM [None]
  - HEPATOMEGALY [None]
  - LYMPHOEDEMA [None]
  - BACK PAIN [None]
  - OSTEONECROSIS OF JAW [None]
  - SWELLING FACE [None]
  - DIZZINESS [None]
  - SYSTEMIC LUPUS ERYTHEMATOSUS [None]
  - DEEP VEIN THROMBOSIS [None]
  - ANAEMIA [None]
  - TENDERNESS [None]
  - SLEEP APNOEA SYNDROME [None]
  - NEOPLASM PROGRESSION [None]
  - FALL [None]
  - ASTHENIA [None]
  - ECCHYMOSIS [None]
  - UTERINE LEIOMYOMA [None]
  - OVARIAN CYST [None]
  - TRISMUS [None]
  - MALAISE [None]
  - TACHYCARDIA [None]
  - LOCAL SWELLING [None]
  - OSTEOMYELITIS [None]
  - STOMATITIS [None]
  - DIARRHOEA [None]
  - WEIGHT INCREASED [None]
  - TEMPOROMANDIBULAR JOINT SYNDROME [None]
  - HYPERTENSION [None]
  - FACIAL PAIN [None]
  - ABSCESS JAW [None]
  - BONE DISORDER [None]
  - ORAL PAIN [None]
  - SYNCOPE [None]
  - HUMERUS FRACTURE [None]
  - OESOPHAGEAL ULCER [None]
  - ARTHRITIS [None]
